FAERS Safety Report 21735642 (Version 2)
Quarter: 2022Q4

REPORT INFORMATION
  Report Type: Spontaneous
  Country: IT (occurrence: IT)
  Receive Date: 20221215
  Receipt Date: 20221227
  Transmission Date: 20230113
  Serious: Yes (Hospitalization, Other)
  Sender: FDA-Public Use
  Company Number: IT-TEVA-2022-IT-2835088

PATIENT
  Age: 18 Year
  Sex: Male

DRUGS (17)
  1. CARBOPLATIN [Suspect]
     Active Substance: CARBOPLATIN
     Indication: Primary mediastinal large B-cell lymphoma
     Dosage: PART OF R-ICE REGIMEN
     Route: 065
  2. CARBOPLATIN [Suspect]
     Active Substance: CARBOPLATIN
     Indication: Central nervous system lymphoma
  3. ETOPOSIDE [Suspect]
     Active Substance: ETOPOSIDE
     Indication: Primary mediastinal large B-cell lymphoma
     Dosage: PART OF R-ICE REGIMEN
     Route: 065
  4. ETOPOSIDE [Suspect]
     Active Substance: ETOPOSIDE
     Indication: Central nervous system lymphoma
  5. METHOTREXATE [Suspect]
     Active Substance: METHOTREXATE
     Indication: Primary mediastinal large B-cell lymphoma
     Dosage: RECEIVED 2 CYCLES
     Route: 065
  6. METHOTREXATE [Suspect]
     Active Substance: METHOTREXATE
     Indication: Central nervous system lymphoma
  7. BUSULFAN [Suspect]
     Active Substance: BUSULFAN
     Indication: Primary mediastinal large B-cell lymphoma
     Route: 065
  8. BUSULFAN [Suspect]
     Active Substance: BUSULFAN
     Indication: Central nervous system lymphoma
  9. IBRUTINIB [Suspect]
     Active Substance: IBRUTINIB
     Indication: Primary mediastinal large B-cell lymphoma
     Dosage: 560 MILLIGRAM DAILY;
     Route: 065
     Dates: end: 201907
  10. CYTARABINE [Suspect]
     Active Substance: CYTARABINE
     Indication: Primary mediastinal large B-cell lymphoma
     Dosage: RECEIVED 2 CYCLES
     Route: 065
  11. CYTARABINE [Suspect]
     Active Substance: CYTARABINE
     Indication: Central nervous system lymphoma
  12. THIOTEPA [Suspect]
     Active Substance: THIOTEPA
     Indication: Primary mediastinal large B-cell lymphoma
     Dosage: RECEIVED 2 CYCLES
     Route: 065
  13. THIOTEPA [Suspect]
     Active Substance: THIOTEPA
     Indication: Central nervous system lymphoma
  14. RITUXIMAB [Suspect]
     Active Substance: RITUXIMAB
     Indication: Primary mediastinal large B-cell lymphoma
     Dosage: RECEIVED 2 CYCLES; PART OF R-ICE REGIMEN
     Route: 065
  15. RITUXIMAB [Suspect]
     Active Substance: RITUXIMAB
     Indication: Central nervous system lymphoma
  16. IFOSFAMIDE [Suspect]
     Active Substance: IFOSFAMIDE
     Indication: Primary mediastinal large B-cell lymphoma
     Dosage: PART OF R-ICE REGIMEN
     Route: 065
  17. IFOSFAMIDE [Suspect]
     Active Substance: IFOSFAMIDE
     Indication: Central nervous system lymphoma

REACTIONS (3)
  - Drug ineffective [Unknown]
  - Pneumonia [Unknown]
  - Off label use [Unknown]
